FAERS Safety Report 18432980 (Version 1)
Quarter: 2020Q4

REPORT INFORMATION
  Report Type: Spontaneous
  Country: GB (occurrence: GB)
  Receive Date: 20201027
  Receipt Date: 20201027
  Transmission Date: 20210114
  Serious: Yes (Other)
  Sender: FDA-Public Use
  Company Number: GB-VALIDUS PHARMACEUTICALS LLC-GB-2020VAL000843

PATIENT

DRUGS (1)
  1. FUROSEMIDE. [Suspect]
     Active Substance: FUROSEMIDE
     Indication: PRODUCT USED FOR UNKNOWN INDICATION
     Dosage: UNK
     Route: 065

REACTIONS (6)
  - Blister [Unknown]
  - Skin erosion [Unknown]
  - Acquired epidermolysis bullosa [Unknown]
  - Blister rupture [Unknown]
  - Dermatitis bullous [Recovered/Resolved]
  - Pruritus [Recovered/Resolved]
